FAERS Safety Report 17968529 (Version 1)
Quarter: 2020Q3

REPORT INFORMATION
  Report Type: Report from Study
  Country: CA (occurrence: CA)
  Receive Date: 20200701
  Receipt Date: 20200701
  Transmission Date: 20201103
  Serious: Yes (Other)
  Sender: FDA-Public Use
  Company Number: CA-GLAXOSMITHKLINE-CA2020AMR085186

PATIENT
  Sex: Female

DRUGS (2)
  1. MEPOLIZUMAB [Suspect]
     Active Substance: MEPOLIZUMAB
     Indication: ASTHMA
     Dosage: 100 MG, Z, 1 MONTH
     Route: 042
     Dates: start: 20180530
  2. MEPOLIZUMAB [Suspect]
     Active Substance: MEPOLIZUMAB
     Dosage: 100 MG, Z, 1 MONTH
     Route: 042

REACTIONS (7)
  - Bronchoalveolar lavage [Unknown]
  - Increased bronchial secretion [Unknown]
  - Cellulitis [Unknown]
  - Asthenia [Unknown]
  - Pain in extremity [Unknown]
  - Dyspnoea [Unknown]
  - Respiratory symptom [Unknown]
